FAERS Safety Report 25961611 (Version 1)
Quarter: 2025Q4

REPORT INFORMATION
  Report Type: Spontaneous
  Country: US (occurrence: US)
  Receive Date: 20251027
  Receipt Date: 20251027
  Transmission Date: 20260117
  Serious: Yes (Hospitalization)
  Sender: ALKEM
  Company Number: US-ALKEM LABORATORIES LIMITED-US-ALKEM-2025-09998

PATIENT
  Age: 26 Year
  Sex: Female

DRUGS (27)
  1. LACOSAMIDE [Suspect]
     Active Substance: LACOSAMIDE
     Indication: Generalised tonic-clonic seizure
     Dosage: UNK
     Route: 065
  2. LACOSAMIDE [Suspect]
     Active Substance: LACOSAMIDE
     Indication: Petit mal epilepsy
  3. CLOBAZAM [Interacting]
     Active Substance: CLOBAZAM
     Indication: Generalised tonic-clonic seizure
     Dosage: 10 MILLIGRAM, HS (INITIAL DOSE (FOR 2 WEEKS)
     Route: 065
     Dates: start: 2023
  4. CLOBAZAM [Interacting]
     Active Substance: CLOBAZAM
     Indication: Petit mal epilepsy
     Dosage: 20 MILLIGRAM, HS (2 WEEKS POST-INITIAL DOSE)
     Route: 065
  5. CLOBAZAM [Interacting]
     Active Substance: CLOBAZAM
     Dosage: 30 MILLIGRAM, HS (4 WEEKS POST-INITIAL DOSE)
     Route: 065
  6. CLOBAZAM [Interacting]
     Active Substance: CLOBAZAM
     Dosage: 40 MILLIGRAM, HS (6 WEEKS POST-INITIAL DOSE)
     Route: 065
  7. CLOBAZAM [Interacting]
     Active Substance: CLOBAZAM
     Dosage: 30 MILLIGRAM, HS (10 WEEKS POST-INITIAL DOSE)
     Route: 065
  8. CLOBAZAM [Interacting]
     Active Substance: CLOBAZAM
     Dosage: 20 MILLIGRAM, HS (12 WEEKS POST-INITIAL DOSE)
     Route: 065
  9. CLOBAZAM [Interacting]
     Active Substance: CLOBAZAM
     Dosage: UNK (13 WEEKS POST-INITIAL DOSE)
     Route: 065
  10. CLOBAZAM [Interacting]
     Active Substance: CLOBAZAM
     Dosage: 200 MILLIGRAM, HS
     Route: 065
  11. LEVETIRACETAM [Suspect]
     Active Substance: LEVETIRACETAM
     Indication: Petit mal epilepsy
     Dosage: UNK
     Route: 065
  12. LEVETIRACETAM [Suspect]
     Active Substance: LEVETIRACETAM
     Indication: Generalised tonic-clonic seizure
  13. LAMOTRIGINE [Suspect]
     Active Substance: LAMOTRIGINE
     Indication: Generalised tonic-clonic seizure
     Dosage: UNK
     Route: 065
  14. LAMOTRIGINE [Suspect]
     Active Substance: LAMOTRIGINE
     Indication: Petit mal epilepsy
     Dosage: 700 MILLIGRAM, QD
     Route: 065
  15. BRIVARACETAM [Suspect]
     Active Substance: BRIVARACETAM
     Indication: Generalised tonic-clonic seizure
     Dosage: UNK
     Route: 065
  16. BRIVARACETAM [Suspect]
     Active Substance: BRIVARACETAM
     Indication: Petit mal epilepsy
  17. PERAMPANEL [Suspect]
     Active Substance: PERAMPANEL
     Indication: Generalised tonic-clonic seizure
     Dosage: UNK
     Route: 065
  18. PERAMPANEL [Suspect]
     Active Substance: PERAMPANEL
     Indication: Petit mal epilepsy
  19. CENOBAMATE [Interacting]
     Active Substance: CENOBAMATE
     Indication: Generalised tonic-clonic seizure
     Dosage: UNK
     Route: 065
  20. CENOBAMATE [Interacting]
     Active Substance: CENOBAMATE
     Indication: Petit mal epilepsy
     Dosage: 200 MILLIGRAM, HS
     Route: 065
  21. CENOBAMATE [Interacting]
     Active Substance: CENOBAMATE
     Dosage: UNK (TAPERED)
     Route: 065
  22. ETHOSUXIMIDE [Suspect]
     Active Substance: ETHOSUXIMIDE
     Indication: Petit mal epilepsy
     Dosage: UNK
     Route: 065
  23. ETHOSUXIMIDE [Suspect]
     Active Substance: ETHOSUXIMIDE
     Indication: Generalised tonic-clonic seizure
  24. VALPROATE SODIUM [Suspect]
     Active Substance: VALPROATE SODIUM
     Indication: Generalised tonic-clonic seizure
     Dosage: UNK
     Route: 065
  25. VALPROATE SODIUM [Suspect]
     Active Substance: VALPROATE SODIUM
     Indication: Petit mal epilepsy
  26. ZONISAMIDE [Suspect]
     Active Substance: ZONISAMIDE
     Indication: Petit mal epilepsy
     Dosage: UNK
     Route: 065
  27. ZONISAMIDE [Suspect]
     Active Substance: ZONISAMIDE
     Indication: Generalised tonic-clonic seizure

REACTIONS (4)
  - Somnolence [Recovered/Resolved]
  - Drug interaction [Unknown]
  - Adverse drug reaction [Unknown]
  - Drug ineffective [Unknown]

NARRATIVE: CASE EVENT DATE: 20230101
